FAERS Safety Report 8021049-6 (Version None)
Quarter: 2011Q4

REPORT INFORMATION
  Report Type: 
  Country: None (occurrence: None)
  Receive Date: 20111228
  Receipt Date: 20111215
  Transmission Date: 20120403
  Serious: Yes (Death)
  Sender: FDA-Public Use
  Company Number: GER/GER/11/0022352

PATIENT
  Age: 68 Year
  Sex: Female
  Weight: 62 kg

DRUGS (3)
  1. NOVALGIN (NOVO-PETRIN) [Concomitant]
  2. IBUPROFEN [Suspect]
     Indication: PAIN
     Dosage: 600 MG, 3 IN 1 D, ORAL
     Route: 048
     Dates: end: 20110629
  3. IBUPROFEN [Suspect]
     Indication: METASTASES TO BONE
     Dosage: 600 MG, 3 IN 1 D, ORAL
     Route: 048
     Dates: end: 20110629

REACTIONS (5)
  - HEPATIC ENCEPHALOPATHY [None]
  - PROTEIN DEFICIENCY ANAEMIA [None]
  - COMA HEPATIC [None]
  - HEPATIC FAILURE [None]
  - CHOLESTASIS [None]
